FAERS Safety Report 15565800 (Version 1)
Quarter: 2018Q4

REPORT INFORMATION
  Report Type: Report from Study
  Country: US (occurrence: US)
  Receive Date: 20181030
  Receipt Date: 20181030
  Transmission Date: 20190205
  Serious: No
  Sender: FDA-Public Use
  Company Number: PHEH2018US045495

PATIENT
  Age: 52 Year
  Sex: Female
  Weight: 111.11 kg

DRUGS (1)
  1. COSENTYX [Suspect]
     Active Substance: SECUKINUMAB
     Indication: JUVENILE PSORIATIC ARTHRITIS
     Dosage: 150 MG, QMO
     Route: 058
     Dates: start: 201611

REACTIONS (2)
  - Sinusitis [Unknown]
  - Product use in unapproved indication [Unknown]

NARRATIVE: CASE EVENT DATE: 201611
